FAERS Safety Report 14698878 (Version 1)
Quarter: 2018Q1

REPORT INFORMATION
  Report Type: Spontaneous
  Country: US (occurrence: US)
  Receive Date: 20180330
  Receipt Date: 20180330
  Transmission Date: 20180509
  Serious: Yes (Hospitalization)
  Sender: FDA-Public Use
  Company Number: US-MSN LABORATORIES PRIVATE LIMITED-2044800

PATIENT
  Age: 71 Year
  Sex: Male

DRUGS (4)
  1. CHOLECALCIFEROL [Suspect]
     Active Substance: CHOLECALCIFEROL
  2. OLANZAPINE. [Suspect]
     Active Substance: OLANZAPINE
  3. ROSUVASTATIN CALCIUM. [Suspect]
     Active Substance: ROSUVASTATIN CALCIUM
     Indication: PRODUCT USED FOR UNKNOWN INDICATION
  4. ASPIRIN. [Suspect]
     Active Substance: ASPIRIN

REACTIONS (2)
  - Delirium [Recovering/Resolving]
  - Transaminases increased [Recovering/Resolving]
